FAERS Safety Report 13142036 (Version 1)
Quarter: 2017Q1

REPORT INFORMATION
  Report Type: Spontaneous
  Country: AE (occurrence: AE)
  Receive Date: 20170124
  Receipt Date: 20170124
  Transmission Date: 20170428
  Serious: Yes (Hospitalization, Other)
  Sender: FDA-Public Use
  Company Number: AE-BRISTOL-MYERS SQUIBB COMPANY-BMS-2017-004159

PATIENT

DRUGS (1)
  1. NIVOLUMAB [Suspect]
     Active Substance: NIVOLUMAB
     Indication: PRODUCT USED FOR UNKNOWN INDICATION
     Dosage: N/A
     Route: 065

REACTIONS (2)
  - Tumour pseudoprogression [Unknown]
  - Respiratory disorder [Unknown]
